FAERS Safety Report 8549903-7 (Version None)
Quarter: 2012Q3

REPORT INFORMATION
  Report Type: 
  Country: None (occurrence: None)
  Receive Date: 20120720
  Receipt Date: 20120720
  Transmission Date: 20120928
  Serious: Yes (Hospitalization)
  Sender: FDA-Public Use
  Company Number: None

PATIENT
  Age: 83 Year
  Sex: Male
  Weight: 69.1 kg

DRUGS (2)
  1. METOPROLOL TARTRATE [Suspect]
     Indication: HYPERTENSION
     Dosage: 25 MG BID PO
     Route: 048
     Dates: start: 20031203, end: 20120716
  2. DILTIAZEM [Suspect]
     Indication: HYPERTENSION
     Dosage: 30 MG TID PO
     Route: 048
     Dates: start: 20100106, end: 20120716

REACTIONS (1)
  - BRADYCARDIA [None]
